FAERS Safety Report 24680684 (Version 1)
Quarter: 2024Q4

REPORT INFORMATION
  Report Type: Spontaneous
  Country: FR (occurrence: FR)
  Receive Date: 20241129
  Receipt Date: 20241129
  Transmission Date: 20250115
  Serious: Yes (Other)
  Sender: BRISTOL-MYERS SQUIBB COMPANY
  Company Number: None

PATIENT
  Age: 77 Year
  Sex: Female
  Weight: 70 kg

DRUGS (2)
  1. SPRYCEL [Suspect]
     Active Substance: DASATINIB
     Indication: Philadelphia positive chronic myeloid leukaemia
     Dosage: DOSAGE LOWERED TO 20 MG/DAY FROM 04/21
     Route: 048
     Dates: start: 20191106
  2. SPRYCEL [Suspect]
     Active Substance: DASATINIB
     Dates: start: 202104

REACTIONS (1)
  - Interstitial lung abnormality [Not Recovered/Not Resolved]

NARRATIVE: CASE EVENT DATE: 20240401
